FAERS Safety Report 7431087-X (Version None)
Quarter: 2011Q2

REPORT INFORMATION
  Report Type: 
  Country: None (occurrence: None)
  Receive Date: 20110421
  Receipt Date: 20110411
  Transmission Date: 20111010
  Serious: Yes (Hospitalization)
  Sender: FDA-Public Use
  Company Number: US-ELI_LILLY_AND_COMPANY-US201010005737

PATIENT
  Sex: Female

DRUGS (11)
  1. LISINOPRIL [Concomitant]
     Dosage: 10 MG, QD
  2. CELEBREX [Concomitant]
     Dosage: 100 MG, BID
  3. FORTEO [Suspect]
     Indication: OSTEOPOROSIS
     Dosage: 20 UG, QD
     Route: 065
     Dates: start: 20090801
  4. PREDNISONE [Concomitant]
     Dosage: 3 MG, QD
  5. ENBREL [Concomitant]
     Dosage: 0.50 MG, WEEKLY (1/W)
  6. PRAVASTATIN [Concomitant]
     Dosage: 10 MG, QD
  7. METFORMIN [Concomitant]
     Dosage: 850 MG, TID
  8. GLIPIZIDE [Concomitant]
     Dosage: 2.5 MG, QD
  9. TRICOR [Concomitant]
     Dosage: 145 MG, QD
  10. TRAMADOL HCL [Concomitant]
     Indication: PAIN
     Dosage: UNK, PRN
  11. METHOTREXATE [Concomitant]
     Dosage: 12.5 MG, WEEKLY (1/W)

REACTIONS (2)
  - INCISION SITE HYPOAESTHESIA [None]
  - HIP ARTHROPLASTY [None]
